FAERS Safety Report 23342623 (Version 5)
Quarter: 2024Q1

REPORT INFORMATION
  Report Type: Spontaneous
  Country: US (occurrence: US)
  Receive Date: 20231227
  Receipt Date: 20240209
  Transmission Date: 20240410
  Serious: Yes (Hospitalization)
  Sender: FDA-Public Use
  Company Number: US-FreseniusKabi-FK202321088

PATIENT
  Age: 66 Year
  Sex: Male

DRUGS (3)
  1. FLUDARABINE [Suspect]
     Active Substance: FLUDARABINE PHOSPHATE
     Indication: Chemotherapy
     Dosage: 25 MG/SQ?FORM OF ADMIN.-  INFUSION
     Route: 042
     Dates: start: 20231129, end: 20231203
  2. CYCLOPHOSPHAMIDE [Suspect]
     Active Substance: CYCLOPHOSPHAMIDE
     Indication: Chemotherapy
     Dosage: FORM OF ADMIN.- INFUSION
     Route: 042
     Dates: start: 20231127, end: 20231128
  3. INVESTIGATIONAL PRODUCT [Suspect]
     Active Substance: INVESTIGATIONAL PRODUCT
     Indication: B-cell lymphoma
     Dosage: 40 X 10^6 VIABLE CAR-T CELLS, SINGLE?FORM OF ADMIN.- SOLUTION
     Route: 042
     Dates: start: 20231206, end: 20231206

REACTIONS (1)
  - Sepsis [Recovered/Resolved]

NARRATIVE: CASE EVENT DATE: 20231215
